FAERS Safety Report 9121474 (Version 1)
Quarter: 2013Q1

REPORT INFORMATION
  Report Type: Spontaneous
  Country: US (occurrence: US)
  Receive Date: 20130108
  Receipt Date: 20130108
  Transmission Date: 20140127
  Serious: Yes (Other)
  Sender: FDA-Public Use
  Company Number: US-RB-046960-12

PATIENT
  Age: 50 Year
  Sex: Male

DRUGS (1)
  1. SUBOXONE TABLET [Suspect]
     Indication: PAIN
     Dosage: DOSING DETAILS UNKNOWN
     Route: 065
     Dates: start: 2008

REACTIONS (2)
  - Thyroid neoplasm [Not Recovered/Not Resolved]
  - Off label use [Not Recovered/Not Resolved]
